FAERS Safety Report 5503579-1 (Version None)
Quarter: 2007Q4

REPORT INFORMATION
  Report Type: 
  Country: None (occurrence: None)
  Receive Date: 20071029
  Receipt Date: 20071022
  Transmission Date: 20080405
  Serious: Yes (Hospitalization)
  Sender: FDA-Public Use
  Company Number: 2007SP012995

PATIENT
  Age: 44 Year
  Sex: Female

DRUGS (2)
  1. TEMODAL [Suspect]
     Indication: GLIOBLASTOMA MULTIFORME
     Dosage: 100 MG; QD; PO
     Route: 048
     Dates: start: 20061206, end: 20070117
  2. DECADRON [Concomitant]

REACTIONS (16)
  - ALANINE AMINOTRANSFERASE INCREASED [None]
  - ASPARTATE AMINOTRANSFERASE INCREASED [None]
  - ASTHENIA [None]
  - BILIARY DILATATION [None]
  - BLOOD ALBUMIN INCREASED [None]
  - BLOOD BILIRUBIN INCREASED [None]
  - BLOOD LACTATE DEHYDROGENASE INCREASED [None]
  - BLOOD UREA INCREASED [None]
  - GAMMA-GLUTAMYLTRANSFERASE INCREASED [None]
  - HAEMANGIOMA OF LIVER [None]
  - HYPERCHOLESTEROLAEMIA [None]
  - JAUNDICE [None]
  - PELVI-URETERIC OBSTRUCTION [None]
  - PRURITUS [None]
  - RENAL CYST [None]
  - UTERINE LEIOMYOMA [None]
